FAERS Safety Report 5259290-8 (Version None)
Quarter: 2007Q1

REPORT INFORMATION
  Report Type: 
  Country: None (occurrence: None)
  Receive Date: 20070308
  Receipt Date: 20070227
  Transmission Date: 20070707
  Serious: Yes (Other)
  Sender: FDA-Public Use
  Company Number: CN-SHR-CN-2007-006986

PATIENT
  Age: 60 Year
  Sex: Male

DRUGS (1)
  1. ULTRAVIST 370 [Suspect]
     Dosage: 100 ML, 1 DOSE
     Route: 040
     Dates: start: 20070213, end: 20070213

REACTIONS (9)
  - BLOOD PRESSURE DECREASED [None]
  - DEPRESSED LEVEL OF CONSCIOUSNESS [None]
  - FAECAL INCONTINENCE [None]
  - HYPERHIDROSIS [None]
  - HYPOAESTHESIA [None]
  - PRURITUS GENERALISED [None]
  - RASH [None]
  - SHOCK [None]
  - URINARY INCONTINENCE [None]
